FAERS Safety Report 10174419 (Version 1)
Quarter: 2014Q2

REPORT INFORMATION
  Report Type: Spontaneous
  Country: US (occurrence: None)
  Receive Date: 20140416
  Receipt Date: 20140416
  Transmission Date: 20141212
  Serious: Yes (Hospitalization)
  Sender: FDA-Public Use
  Company Number: 163-POMAL-13121483

PATIENT
  Age: 66 Year
  Sex: Female

DRUGS (8)
  1. POMALYST (POMALIDOMIDE) (4 MILLIGRAM, CAPSULES) [Suspect]
     Indication: PLASMA CELL MYELOMA
     Dosage: 4 MG, 21 IN 28 D, PO
     Route: 048
     Dates: start: 20131025, end: 201311
  2. METFORMIN (METFORMIN) (UNKNOWN) [Concomitant]
  3. NORCO (VICODIN) (UNKNOWN) [Concomitant]
  4. POTASSIUM CHLORIDE (POTASSIUM CHLORIDE) (UNKNOWN) [Concomitant]
  5. COMPAZINE (PROCHLORPERAZINE EDISYLATE)  (UNKNOWN) [Concomitant]
  6. CALCIUM (CALCIUM) (UNKNOWN) [Concomitant]
  7. SYNTHROID (LEVOTHYROXINE SODIUM) (UNKNOWN) [Concomitant]
  8. NYSTTIN (NYSTATIN) (SUSPENSION) [Concomitant]

REACTIONS (2)
  - Thrombocytopenia [None]
  - Dyspnoea [None]
